FAERS Safety Report 13544126 (Version 1)
Quarter: 2017Q2

REPORT INFORMATION
  Report Type: Spontaneous
  Country: US (occurrence: US)
  Receive Date: 20170512
  Receipt Date: 20170512
  Transmission Date: 20170830
  Serious: Yes (Hospitalization)
  Sender: FDA-Public Use
  Company Number: None

PATIENT
  Age: 28 Year
  Sex: Male
  Weight: 89.55 kg

DRUGS (3)
  1. MULTIVITAMIN [Concomitant]
     Active Substance: VITAMINS
  2. CIPROFLOXACIN HCL [Suspect]
     Active Substance: CIPROFLOXACIN HYDROCHLORIDE
     Indication: COLITIS
     Dosage: ?          QUANTITY:1 CAPSULE(S);?
     Route: 048
     Dates: start: 20170510, end: 20170511
  3. FLAGYL [Concomitant]
     Active Substance: METRONIDAZOLE\METRONIDAZOLE HYDROCHLORIDE

REACTIONS (12)
  - Musculoskeletal stiffness [None]
  - Gait disturbance [None]
  - Anxiety [None]
  - Muscle tightness [None]
  - Pain in extremity [None]
  - Feeling abnormal [None]
  - Presyncope [None]
  - Visual impairment [None]
  - Dizziness [None]
  - Headache [None]
  - Halo vision [None]
  - Arthropathy [None]

NARRATIVE: CASE EVENT DATE: 20170512
